FAERS Safety Report 7576214-9 (Version None)
Quarter: 2011Q2

REPORT INFORMATION
  Report Type: 
  Country: None (occurrence: None)
  Receive Date: 20110628
  Receipt Date: 20110128
  Transmission Date: 20111010
  Serious: Yes (Hospitalization, Other)
  Sender: FDA-Public Use
  Company Number: US-BAYER-201031341NA

PATIENT
  Sex: Female
  Weight: 96.599 kg

DRUGS (11)
  1. OXYCODONE HCL [Concomitant]
     Dosage: UNK
     Dates: start: 20071130, end: 20100317
  2. CYTOMEL [Concomitant]
  3. LEVOXYL [Concomitant]
  4. CALCITONIN [Concomitant]
  5. YAZ [Suspect]
     Indication: PREMENSTRUAL SYNDROME
     Dosage: UNK
     Dates: start: 20050101, end: 20080101
  6. ZOLOFT [Concomitant]
  7. PROGESTERONE [Concomitant]
     Dosage: UNK
     Dates: start: 20100101
  8. VICODIN [Concomitant]
  9. AZITHROMYCIN [Concomitant]
     Dosage: UNK
     Dates: start: 20100312
  10. HYDROCODONE BITARTRATE AND ACETAMINOPHEN [Concomitant]
     Dosage: UNK
     Dates: start: 20020903, end: 20100616
  11. SYNTHROID [Concomitant]
     Dosage: UNK
     Dates: start: 20030101

REACTIONS (4)
  - GALLBLADDER DISORDER [None]
  - DYSFUNCTIONAL UTERINE BLEEDING [None]
  - MENORRHAGIA [None]
  - CHOLECYSTITIS CHRONIC [None]
